FAERS Safety Report 12304259 (Version 1)
Quarter: 2016Q2

REPORT INFORMATION
  Report Type: Spontaneous
  Country: US (occurrence: None)
  Receive Date: 20160425
  Receipt Date: 20160425
  Transmission Date: 20160815
  Serious: Yes (Hospitalization)
  Sender: FDA-Public Use
  Company Number: None

PATIENT
  Age: 31 Year
  Sex: Male

DRUGS (2)
  1. PRAZOSIN [Suspect]
     Active Substance: PRAZOSIN
     Indication: NIGHTMARE
     Route: 048
     Dates: start: 20150716, end: 20150902
  2. PRAZOSIN [Suspect]
     Active Substance: PRAZOSIN
     Indication: PROPHYLAXIS
     Route: 048
     Dates: start: 20150716, end: 20150902

REACTIONS (1)
  - Priapism [None]

NARRATIVE: CASE EVENT DATE: 20150929
